FAERS Safety Report 18849086 (Version 5)
Quarter: 2022Q2

REPORT INFORMATION
  Report Type: Report from Study
  Country: US (occurrence: US)
  Receive Date: 20210205
  Receipt Date: 20220616
  Transmission Date: 20220720
  Serious: No
  Sender: FDA-Public Use
  Company Number: US-NOVARTISTESTPH-NVSC2021US020419

PATIENT
  Sex: Female
  Weight: 97.506 kg

DRUGS (6)
  1. TREPROSTINIL [Suspect]
     Active Substance: TREPROSTINIL
     Indication: Pulmonary arterial hypertension
     Dosage: (CONCENTRATION 1 MG/ML) STER DIL SDV
     Route: 042
     Dates: start: 20201117
  2. TREPROSTINIL [Suspect]
     Active Substance: TREPROSTINIL
     Dosage: CONT, 16 NG/KG/MIN AT PUMP RATE OF 43ML/24 HOURS16 NG/KG/MIN, CONT (CONCENTRATION 1 MG/ML) STER DIL
     Route: 042
     Dates: start: 20210118
  3. TREPROSTINIL [Suspect]
     Active Substance: TREPROSTINIL
     Dosage: 30 NG/KG/MIN, CONT (CONCENTRATION 2.5 MG/ML)
     Route: 042
     Dates: start: 20211201
  4. TREPROSTINIL [Suspect]
     Active Substance: TREPROSTINIL
     Dosage: 30 NG/KG/MIN CONT (CONCENTRATION 10 MG/ML)
     Route: 058
     Dates: start: 20220112
  5. TADALAFIL [Concomitant]
     Active Substance: TADALAFIL
     Indication: Product used for unknown indication
     Dosage: UNK
     Route: 065
  6. XARELTO [Concomitant]
     Active Substance: RIVAROXABAN
     Indication: Product used for unknown indication
     Dosage: UNK
     Route: 065

REACTIONS (9)
  - Ulcer [Unknown]
  - Infection [Unknown]
  - Wound [Recovering/Resolving]
  - Impaired healing [Not Recovered/Not Resolved]
  - Nausea [Unknown]
  - Pain in extremity [Unknown]
  - Catheter site pain [Unknown]
  - Catheter site irritation [Unknown]
  - Drug intolerance [Unknown]
